FAERS Safety Report 19869812 (Version 1)
Quarter: 2021Q3

REPORT INFORMATION
  Report Type: Spontaneous
  Country: FR (occurrence: FR)
  Receive Date: 20210923
  Receipt Date: 20210923
  Transmission Date: 20211014
  Serious: Yes (Hospitalization, Other)
  Sender: FDA-Public Use
  Company Number: FR-BRISTOL-MYERS SQUIBB COMPANY-BMS-2021-093915

PATIENT
  Age: 39 Year
  Sex: Male
  Weight: 56 kg

DRUGS (1)
  1. OPDIVO [Suspect]
     Active Substance: NIVOLUMAB
     Indication: RENAL CANCER METASTATIC
     Route: 041
     Dates: start: 20210104, end: 20210623

REACTIONS (2)
  - Diabetes mellitus [Not Recovered/Not Resolved]
  - Diabetic ketoacidosis [Recovered/Resolved with Sequelae]

NARRATIVE: CASE EVENT DATE: 202107
